FAERS Safety Report 6865578-7 (Version None)
Quarter: 2010Q3

REPORT INFORMATION
  Report Type: 
  Country: None (occurrence: None)
  Receive Date: 20100720
  Receipt Date: 20100706
  Transmission Date: 20110219
  Serious: Yes (Disabling, Other)
  Sender: FDA-Public Use
  Company Number: 2010MA000547

PATIENT
  Age: 58 Year
  Sex: Female

DRUGS (6)
  1. ACYCLOVIR [Suspect]
     Indication: SKIN LESION
     Dosage: 200 MG; TID; PO
     Route: 048
     Dates: start: 20100618, end: 20100623
  2. TRAMADOL HYDROCHLORIDE [Concomitant]
  3. PUREPAC [Concomitant]
  4. ZOPICLONE [Concomitant]
  5. DIAZEPAM [Concomitant]
  6. LEVOTHYROXINE SODIUM [Concomitant]

REACTIONS (3)
  - MUSCLE SPASMS [None]
  - PAIN IN EXTREMITY [None]
  - PARAESTHESIA [None]
